FAERS Safety Report 4377382-2 (Version None)
Quarter: 2004Q2

REPORT INFORMATION
  Report Type: 
  Country: None (occurrence: None)
  Receive Date: 20040614
  Receipt Date: 20040614
  Transmission Date: 20050107
  Serious: Yes (Hospitalization)
  Sender: FDA-Public Use
  Company Number: None

PATIENT
  Age: 51 Year
  Sex: Female
  Weight: 58.9676 kg

DRUGS (2)
  1. OXYCONTIN [Suspect]
     Indication: REFLEX SYMPATHETIC DYSTROPHY
     Dosage: 20 MG  EVERY 12 H ORAL
     Route: 048
     Dates: start: 20040603, end: 20040603
  2. ULTRAM [Suspect]
     Indication: REFLEX SYMPATHETIC DYSTROPHY
     Dosage: 10MG  2 EVERY ORAL
     Route: 048
     Dates: start: 19990913, end: 20010410

REACTIONS (10)
  - ABDOMINAL DISCOMFORT [None]
  - ANXIETY [None]
  - CHEST DISCOMFORT [None]
  - EYE SWELLING [None]
  - FEELING COLD [None]
  - HEART RATE INCREASED [None]
  - HYPERHIDROSIS [None]
  - MALAISE [None]
  - MUSCLE SPASMS [None]
  - URTICARIA [None]
